FAERS Safety Report 6097619-1 (Version None)
Quarter: 2009Q1

REPORT INFORMATION
  Report Type: 
  Country: None (occurrence: None)
  Receive Date: 20090225
  Receipt Date: 20090225
  Transmission Date: 20090719
  Serious: Yes (Other)
  Sender: FDA-Public Use
  Company Number: None

PATIENT
  Sex: Female
  Weight: 68 kg

DRUGS (2)
  1. DOBUTAMINE HCL [Suspect]
     Indication: CARDIAC STRESS TEST
     Dosage: 250MG/250ML ONE TIME IV DRIP ONE TIME
     Route: 041
     Dates: start: 20090220, end: 20090220
  2. SODIUM CHLORIDE 0.9% [Suspect]

REACTIONS (5)
  - AGITATION [None]
  - DYSKINESIA [None]
  - FLANK PAIN [None]
  - HYPERHIDROSIS [None]
  - HYPERTENSION [None]
